FAERS Safety Report 9583595 (Version 1)
Quarter: 2013Q4

REPORT INFORMATION
  Report Type: Spontaneous
  Country: US (occurrence: US)
  Receive Date: 20131002
  Receipt Date: 20131002
  Transmission Date: 20140711
  Serious: No
  Sender: FDA-Public Use
  Company Number: US-AMGEN-USASP2013048022

PATIENT
  Age: 51 Year
  Sex: Male
  Weight: 108.84 kg

DRUGS (14)
  1. ENBREL [Suspect]
     Indication: PRODUCT USED FOR UNKNOWN INDICATION
     Dosage: 50 MG, QWK
     Route: 058
  2. PLAQUENIL                          /00072602/ [Concomitant]
     Dosage: 200 MG, UNK
  3. ATENOLOL [Concomitant]
     Dosage: 25 MG, UNK
  4. METFORMIN [Concomitant]
     Dosage: 500 MG, UNK
  5. FOLIC ACID [Concomitant]
     Dosage: 1 MG, UNK
  6. LEVOTHYROXIN [Concomitant]
     Dosage: 25 MUG, UNK
  7. HYDROCHLOROTH [Concomitant]
     Dosage: 12.5 MG, UNK
  8. OXYCODONE [Concomitant]
     Dosage: 5 MG, UNK
  9. POTASSIUM [Concomitant]
     Dosage: 595 MG, UNK
  10. CALCIUM/VITAMIN D                  /01204201/ [Concomitant]
     Dosage: UNK
  11. VITAMIN C                          /00008001/ [Concomitant]
     Dosage: 500 MG, UNK
  12. SUPER B COMPLEX                    /06817001/ [Concomitant]
     Dosage: UNK
  13. MAGNESIUM [Concomitant]
     Dosage: 300 MG, UNK
  14. SILYBUM MARIANUM [Concomitant]
     Dosage: UNK

REACTIONS (3)
  - Drug effect decreased [Unknown]
  - Pain [Unknown]
  - Injection site reaction [Unknown]
